FAERS Safety Report 24292424 (Version 1)
Quarter: 2024Q3

REPORT INFORMATION
  Report Type: Spontaneous
  Country: JP (occurrence: JP)
  Receive Date: 20240906
  Receipt Date: 20240906
  Transmission Date: 20241017
  Serious: Yes (Other)
  Sender: MERCK
  Company Number: JP-009507513-2409JPN001642

PATIENT
  Age: 57 Year
  Sex: Male

DRUGS (3)
  1. PEMBROLIZUMAB [Suspect]
     Active Substance: PEMBROLIZUMAB
     Indication: Oesophageal squamous cell carcinoma
     Dosage: 200 MILLIGRAM, Q3W
     Route: 042
  2. CISPLATIN [Concomitant]
     Active Substance: CISPLATIN
     Indication: Oesophageal squamous cell carcinoma
     Dosage: UNK, Q3W; STRENGTH 80 MG/M2
     Route: 042
  3. FLUOROURACIL SODIUM [Concomitant]
     Active Substance: FLUOROURACIL SODIUM
     Indication: Oesophageal squamous cell carcinoma
     Dosage: UNK; ON DAYS 1 THROUGH 5 IN EVERY 3 WEEK (Q3W) CYCLE; STRENGTH: 800 MG/M2
     Route: 042

REACTIONS (2)
  - Tumour hyperprogression [Unknown]
  - Oesophageal-pulmonary fistula [Unknown]
